FAERS Safety Report 9926769 (Version 1)
Quarter: 2014Q1

REPORT INFORMATION
  Report Type: Spontaneous
  Country: US (occurrence: US)
  Receive Date: 20140226
  Receipt Date: 20140226
  Transmission Date: 20141002
  Serious: Yes (Hospitalization)
  Sender: FDA-Public Use
  Company Number: US-ASTRAZENECA-2014SE11667

PATIENT
  Age: 75 Year
  Sex: Female

DRUGS (7)
  1. ROSUVASTATIN [Suspect]
     Route: 048
  2. CLOPIDOGREL [Suspect]
  3. LORTAB [Suspect]
  4. ESOMEPRAZOLE [Concomitant]
  5. LEVOTHYROXINE [Concomitant]
  6. PREGABALIN [Concomitant]
  7. RISEDRONATE [Concomitant]

REACTIONS (1)
  - Hepatotoxicity [Recovered/Resolved]
